FAERS Safety Report 7820021-6 (Version None)
Quarter: 2011Q4

REPORT INFORMATION
  Report Type: 
  Country: None (occurrence: None)
  Receive Date: 20111018
  Receipt Date: 20111011
  Transmission Date: 20120403
  Serious: Yes (Other)
  Sender: FDA-Public Use
  Company Number: PHEH2011US05727

PATIENT
  Sex: Male

DRUGS (2)
  1. ANTIBIOTICS [Concomitant]
  2. AMLODIPINE MALEATE/ BENAZEPRIL HYDROCHLORIDE [Suspect]
     Dosage: 10/20 MG, ONCE A DAY

REACTIONS (7)
  - PNEUMONIA [None]
  - ABDOMINAL DISCOMFORT [None]
  - INFECTION [None]
  - FLUID RETENTION [None]
  - INFLUENZA LIKE ILLNESS [None]
  - ARTHRALGIA [None]
  - BRONCHITIS [None]
